FAERS Safety Report 4861408-3 (Version None)
Quarter: 2005Q4

REPORT INFORMATION
  Report Type: 
  Country: None (occurrence: None)
  Receive Date: 20051220
  Receipt Date: 20040617
  Transmission Date: 20060501
  Serious: Yes (Other)
  Sender: FDA-Public Use
  Company Number: CA-ROCHE-371399

PATIENT
  Age: 43 Year
  Sex: Male
  Weight: 72 kg

DRUGS (13)
  1. FUZEON [Suspect]
     Route: 058
     Dates: start: 20040402
  2. TIPRANAVIR [Suspect]
     Route: 048
     Dates: start: 20040402
  3. VIDEX EC [Concomitant]
     Route: 048
  4. RESCRIPTOR [Concomitant]
     Route: 048
  5. VIREAD [Concomitant]
     Route: 048
  6. NORVIR [Concomitant]
     Route: 048
  7. MEPRON [Concomitant]
     Route: 048
  8. ZITHROMAX [Concomitant]
     Route: 048
  9. SPORANOX [Concomitant]
     Route: 048
  10. NEXIUM [Concomitant]
     Route: 048
  11. NYSTATIN [Concomitant]
  12. ATIVAN [Concomitant]
     Route: 048
  13. ATARAX [Concomitant]
     Route: 048

REACTIONS (4)
  - ANXIETY [None]
  - HALLUCINATION [None]
  - PSYCHOTIC DISORDER [None]
  - RESPIRATORY DISORDER [None]
